FAERS Safety Report 6207834-1 (Version None)
Quarter: 2009Q2

REPORT INFORMATION
  Report Type: 
  Country: None (occurrence: None)
  Receive Date: 20090522
  Receipt Date: 20090513
  Transmission Date: 20091009
  Serious: Yes (Hospitalization)
  Sender: FDA-Public Use
  Company Number: GXKR2009DE05832

PATIENT
  Sex: Female

DRUGS (1)
  1. DICLO SL 1A PHARMA (NGX) (DICLOFENAC) UNKNOWN [Suspect]
     Dosage: ORAL
     Route: 048

REACTIONS (20)
  - ANGINA PECTORIS [None]
  - ANOREXIA [None]
  - ARRHYTHMIA [None]
  - CEREBROVASCULAR DISORDER [None]
  - ERYTHEMA [None]
  - FATIGUE [None]
  - HEADACHE [None]
  - HOT FLUSH [None]
  - HYPERHIDROSIS [None]
  - HYPERTENSION [None]
  - INFLUENZA LIKE ILLNESS [None]
  - MEMORY IMPAIRMENT [None]
  - PALPITATIONS [None]
  - SENSORY DISTURBANCE [None]
  - SLEEP DISORDER [None]
  - SOMNOLENCE [None]
  - TACHYCARDIA [None]
  - TINNITUS [None]
  - TREMOR [None]
  - VERTIGO [None]
